FAERS Safety Report 26150873 (Version 1)
Quarter: 2025Q4

REPORT INFORMATION
  Report Type: Spontaneous
  Country: EU (occurrence: EU)
  Receive Date: 20251212
  Receipt Date: 20251212
  Transmission Date: 20260118
  Serious: Yes (Other)
  Sender: ACCORD
  Company Number: None

PATIENT
  Age: 77 Year
  Sex: Female
  Weight: 90 kg

DRUGS (4)
  1. FLUOROURACIL [Suspect]
     Active Substance: FLUOROURACIL
     Indication: Product used for unknown indication
     Dates: start: 20220413, end: 20220413
  2. LEVOLEUCOVORIN [Suspect]
     Active Substance: LEVOLEUCOVORIN
     Indication: Product used for unknown indication
     Dosage: 2022-04-13 20:45
     Dates: start: 20220413, end: 20220413
  3. MEGACE [Suspect]
     Active Substance: MEGESTROL ACETATE
     Indication: Product used for unknown indication
     Dates: start: 20220413, end: 20220413
  4. DEXAMETHASONE [Suspect]
     Active Substance: DEXAMETHASONE
     Indication: Product used for unknown indication
     Dates: start: 20220413, end: 20220413

REACTIONS (5)
  - Malaise [Recovering/Resolving]
  - Headache [Recovering/Resolving]
  - Erythema [Recovering/Resolving]
  - Cold sweat [Recovering/Resolving]
  - Blood pressure increased [Recovering/Resolving]

NARRATIVE: CASE EVENT DATE: 20220413
